FAERS Safety Report 4642191-3 (Version None)
Quarter: 2005Q2

REPORT INFORMATION
  Report Type: 
  Country: None (occurrence: None)
  Receive Date: 20050420
  Receipt Date: 20050405
  Transmission Date: 20051028
  Serious: Yes (Hospitalization)
  Sender: FDA-Public Use
  Company Number: USA050291178

PATIENT
  Age: 75 Year
  Sex: Female

DRUGS (13)
  1. FORTEO [Suspect]
     Indication: OSTEOPOROSIS
     Dosage: 20 UG/1 DAY
     Dates: start: 20040801, end: 20050328
  2. DIOVAN [Concomitant]
  3. HYDROCHLOROTHIAZIDE [Concomitant]
  4. SODIUM CHLORIDE [Concomitant]
  5. FLONASE [Concomitant]
  6. LIBRAX [Concomitant]
  7. ADVAIR DISKUS 100/50 [Concomitant]
  8. PLAVIX [Concomitant]
  9. LIPITOR [Concomitant]
  10. SINGULAIR (MONTELUKAST) [Concomitant]
  11. PRILOSEC (OMEPRAZOLE RATIOPHARM) [Concomitant]
  12. MUCINEX (GUAIFENESIN L.A.) [Concomitant]
  13. ZYRTEC [Concomitant]

REACTIONS (12)
  - ASTHENIA [None]
  - BLOOD PRESSURE DECREASED [None]
  - DEHYDRATION [None]
  - FATIGUE [None]
  - INFLUENZA [None]
  - PHARMACEUTICAL PRODUCT COMPLAINT [None]
  - PNEUMONIA [None]
  - PYREXIA [None]
  - RESPIRATORY TRACT CONGESTION [None]
  - THERAPEUTIC RESPONSE UNEXPECTED [None]
  - VIRAL INFECTION [None]
  - VIRAL UPPER RESPIRATORY TRACT INFECTION [None]
